FAERS Safety Report 19800829 (Version 2)
Quarter: 2021Q3

REPORT INFORMATION
  Report Type: Report from Study
  Country: DE (occurrence: DE)
  Receive Date: 20210908
  Receipt Date: 20210914
  Transmission Date: 20211014
  Serious: Yes (Death, Hospitalization, Other)
  Sender: FDA-Public Use
  Company Number: DE-BRISTOL-MYERS SQUIBB COMPANY-BMS-2021-089786

PATIENT
  Age: 70 Year
  Sex: Male
  Weight: 64 kg

DRUGS (4)
  1. CANDESARTAN. [Concomitant]
     Active Substance: CANDESARTAN
     Indication: HYPERTENSION
     Dosage: 16 MILLIGRAM
     Route: 048
     Dates: start: 2020, end: 20210202
  2. NIVOLUMAB [Suspect]
     Active Substance: NIVOLUMAB
     Indication: METASTATIC NEOPLASM
     Dosage: 240 MILLIGRAM
     Route: 042
     Dates: start: 20201014, end: 20201209
  3. IPILIMUMAB [Suspect]
     Active Substance: IPILIMUMAB
     Indication: METASTATIC NEOPLASM
     Dosage: 76 MILLIGRAM
     Route: 042
     Dates: start: 20201014, end: 20201125
  4. CARBIMAZOL [Concomitant]
     Active Substance: CARBIMAZOLE
     Indication: HYPERTHYROIDISM
     Dosage: 10 MILLIGRAM
     Route: 048
     Dates: start: 20201221, end: 20210202

REACTIONS (4)
  - General physical health deterioration [Recovered/Resolved with Sequelae]
  - Colitis [Recovered/Resolved with Sequelae]
  - Arthritis [Recovered/Resolved with Sequelae]
  - Malignant neoplasm progression [Fatal]

NARRATIVE: CASE EVENT DATE: 20210203
